FAERS Safety Report 13352278 (Version 1)
Quarter: 2017Q1

REPORT INFORMATION
  Report Type: Spontaneous
  Country: US (occurrence: US)
  Receive Date: 20170320
  Receipt Date: 20170320
  Transmission Date: 20170429
  Serious: No
  Sender: FDA-Public Use
  Company Number: US-SA-2016SA206363

PATIENT
  Age: 88 Year
  Weight: 59 kg

DRUGS (2)
  1. NASACORT ALLERGY 24HR [Suspect]
     Active Substance: TRIAMCINOLONE ACETONIDE
     Indication: HEADACHE
     Dosage: FORM NASAL SPRAY,ONCE EACH NIGHT
     Route: 065
     Dates: start: 2015, end: 201611
  2. NASACORT ALLERGY 24HR [Suspect]
     Active Substance: TRIAMCINOLONE ACETONIDE
     Indication: CHRONIC SINUSITIS
     Dosage: FORM NASAL SPRAY,ONCE EACH NIGHT
     Route: 065
     Dates: start: 2015, end: 201611

REACTIONS (3)
  - Drug ineffective [Unknown]
  - Headache [Recovered/Resolved]
  - Extra dose administered [Unknown]
